FAERS Safety Report 5033579-X (Version None)
Quarter: 2006Q2

REPORT INFORMATION
  Report Type: 
  Country: None (occurrence: None)
  Receive Date: 20060623
  Receipt Date: 20060612
  Transmission Date: 20061013
  Serious: Yes (Disabling)
  Sender: FDA-Public Use
  Company Number: IT-ROCHE-451902

PATIENT
  Age: 48 Year
  Sex: Male
  Weight: 72 kg

DRUGS (2)
  1. PEG-INTERFERON ALFA 2A (RO 25-8310) [Suspect]
     Dosage: DOSAGE FORM: SYRINGE DATE OF LAST DOSE PRIOR TO SAE: 16 MAY 2006
     Route: 058
     Dates: start: 20050801, end: 20060523
  2. PEG-INTERFERON ALFA 2A (RO 25-8310) [Suspect]
     Route: 058
     Dates: start: 20060523, end: 20060615

REACTIONS (3)
  - ABASIA [None]
  - MUSCULAR WEAKNESS [None]
  - PARAESTHESIA [None]
